FAERS Safety Report 13035987 (Version 1)
Quarter: 2016Q4

REPORT INFORMATION
  Report Type: Report from Study
  Country: ZA (occurrence: ZA)
  Receive Date: 20161216
  Receipt Date: 20161216
  Transmission Date: 20170207
  Serious: Yes (Hospitalization, Other)
  Sender: FDA-Public Use
  Company Number: ZA-ELI_LILLY_AND_COMPANY-ZA201612002724

PATIENT
  Sex: Female
  Weight: 58 kg

DRUGS (21)
  1. LACSON [Concomitant]
     Indication: CONSTIPATION
     Dosage: 10 ML, QD
     Route: 048
     Dates: start: 20160817
  2. FOLIC ACID. [Concomitant]
     Active Substance: FOLIC ACID
     Indication: PREMEDICATION
  3. LENAMET [Concomitant]
     Indication: PREMEDICATION
  4. FERRIMED DS [Concomitant]
     Indication: ANAEMIA
     Dosage: 1 DF, QD
     Route: 048
     Dates: start: 20161018
  5. CARBOPLATIN. [Suspect]
     Active Substance: CARBOPLATIN
     Dosage: AUC 4 DAY 1 OF 21-DAY
     Route: 042
     Dates: start: 20160930
  6. CARBOPLATIN. [Suspect]
     Active Substance: CARBOPLATIN
     Dosage: AUC 5 DAY 1 OF 21-DAY
     Route: 042
     Dates: start: 20160729, end: 20160909
  7. CLOPAMON [Concomitant]
     Active Substance: METOCLOPRAMIDE
     Indication: NAUSEA
     Dosage: 10 MG, TID
     Route: 048
     Dates: start: 20160712
  8. BUDEFLAM [Concomitant]
     Indication: EMPHYSEMA
     Dosage: 2 PUFFS QD
     Route: 055
     Dates: start: 20160613
  9. PARACETAMOL [Concomitant]
     Active Substance: ACETAMINOPHEN
     Indication: BACK PAIN
     Dosage: 1 G, PRN
     Route: 048
     Dates: start: 20160603
  10. BETANOID                           /00008501/ [Concomitant]
     Active Substance: BETAMETHASONE
     Indication: PREMEDICATION
     Dosage: 8 MG IV DRIP, ON DAY ONE OF EACH CYCLE
     Route: 042
     Dates: start: 20160708
  11. BETANOID                           /00008501/ [Concomitant]
     Active Substance: BETAMETHASONE
     Dosage: 1 MG, QD
     Route: 048
     Dates: start: 20160906, end: 20160907
  12. TRAMCET [Concomitant]
     Active Substance: ACETAMINOPHEN\TRAMADOL
     Indication: PERIPHERAL SENSORY NEUROPATHY
     Dosage: 2 DF, QID
     Route: 048
     Dates: start: 20161005
  13. VITAMIN B12 [Concomitant]
     Active Substance: CYANOCOBALAMIN
     Indication: CHEMOTHERAPY
     Dosage: 100 MG, QD
     Route: 048
     Dates: start: 20160701
  14. FOLIC ACID. [Concomitant]
     Active Substance: FOLIC ACID
     Indication: CHEMOTHERAPY
     Dosage: 0.5 MG, QD
     Route: 048
     Dates: start: 20160701
  15. VITAMIN B12 [Concomitant]
     Active Substance: CYANOCOBALAMIN
     Indication: PREMEDICATION
  16. VENTEZE                            /00139501/ [Concomitant]
     Indication: EMPHYSEMA
     Dosage: 2 PUFFS, PRN
     Route: 055
     Dates: start: 20160627
  17. LENAMET [Concomitant]
     Indication: CHEMOTHERAPY
     Dosage: 300 MG, ON DAY ONE OF EACH CYCLE
     Route: 042
     Dates: start: 20160708
  18. PEMETREXED [Suspect]
     Active Substance: PEMETREXED
     Indication: NON-SMALL CELL LUNG CANCER
     Dosage: 500 MG/M2, ONCE EVERY THREE WEEKS
     Route: 042
     Dates: start: 20160708, end: 20161028
  19. CARBOPLATIN. [Suspect]
     Active Substance: CARBOPLATIN
     Indication: NON-SMALL CELL LUNG CANCER
     Dosage: AUC 6 DAY 1 OF 21-DAY
     Route: 042
     Dates: start: 20160708, end: 20160708
  20. BETANOID                           /00008501/ [Concomitant]
     Active Substance: BETAMETHASONE
     Indication: CHEMOTHERAPY
     Dosage: 4 MG, DAY 0, 1, 2 OF 21 DAY CYCLE
     Dates: start: 20160707
  21. SLOW-K [Concomitant]
     Active Substance: POTASSIUM CHLORIDE
     Indication: HYPOKALAEMIA
     Dosage: 2 DF, BID
     Route: 048
     Dates: start: 20160908

REACTIONS (6)
  - White blood cell count decreased [Recovered/Resolved]
  - Anaemia [Recovered/Resolved]
  - Thrombocytopenia [Not Recovered/Not Resolved]
  - Mucosal inflammation [Unknown]
  - Neutropenia [Recovered/Resolved]
  - Hypophagia [Unknown]

NARRATIVE: CASE EVENT DATE: 20160922
